FAERS Safety Report 8941693 (Version 1)
Quarter: 2012Q4

REPORT INFORMATION
  Report Type: 
  Country: US (occurrence: US)
  Receive Date: 20121203
  Receipt Date: 20121203
  Transmission Date: 20130627
  Serious: Yes (Other)
  Sender: FDA-Public Use
  Company Number: PHEH2012US023495

PATIENT
  Age: 73 None
  Sex: Female

DRUGS (10)
  1. RECLAST [Suspect]
     Indication: OSTEOPOROSIS
     Dosage: UNK UKN, UNK
     Route: 042
  2. RECLAST [Suspect]
     Dosage: UNK UKN, UNK
     Route: 042
  3. RECLAST [Suspect]
     Dosage: UNK UKN, UNK
     Route: 042
  4. RECLAST [Suspect]
     Dosage: UNK UKN, UNK
     Route: 042
     Dates: start: 20121010
  5. SIMVASTATIN [Concomitant]
  6. VITAMIN D [Concomitant]
  7. SYMBICORT [Concomitant]
     Dosage: UNK UKN, PRN
  8. HYDROCODONE [Concomitant]
     Dosage: UNK UKN, PRN
  9. VALIUM [Concomitant]
     Dosage: UNK UKN, PRN
  10. WARFARIN [Concomitant]

REACTIONS (3)
  - Breast cancer [Unknown]
  - Cholelithiasis [Unknown]
  - Pain [Unknown]
